FAERS Safety Report 9892569 (Version 1)
Quarter: 2014Q1

REPORT INFORMATION
  Report Type: Spontaneous
  Country: GB (occurrence: GB)
  Receive Date: 20140212
  Receipt Date: 20140212
  Transmission Date: 20141002
  Serious: Yes (Death)
  Sender: FDA-Public Use
  Company Number: PHHY2014GB013991

PATIENT
  Sex: Male

DRUGS (2)
  1. DOXYCYCLINE [Suspect]
     Indication: ACNE
     Dosage: 50 MG, UNK
     Dates: end: 201108
  2. DOXYCYCLINE [Suspect]
     Dosage: 50 MG, UNK
     Dates: start: 201202

REACTIONS (3)
  - Completed suicide [Fatal]
  - Depressed mood [Unknown]
  - Malaise [Unknown]
